FAERS Safety Report 10864029 (Version 4)
Quarter: 2015Q1

REPORT INFORMATION
  Report Type: Spontaneous
  Country: FR (occurrence: FR)
  Receive Date: 20150224
  Receipt Date: 20150305
  Transmission Date: 20150721
  Serious: Yes (Hospitalization)
  Sender: FDA-Public Use
  Company Number: PHHY2015FR020450

PATIENT
  Age: 12 Year
  Sex: Female
  Weight: 49 kg

DRUGS (5)
  1. TOBI [Suspect]
     Active Substance: TOBRAMYCIN
     Indication: CHRONIC SINUSITIS
     Dosage: 300 MG, BID
     Route: 055
     Dates: start: 20150115, end: 20150130
  2. CIFLOX [Suspect]
     Active Substance: CIPROFLOXACIN
     Indication: CHRONIC SINUSITIS
     Dosage: 750 MG, BID
     Route: 048
     Dates: start: 20150115, end: 20150130
  3. DOLIPRANE [Suspect]
     Active Substance: ACETAMINOPHEN
     Indication: PYREXIA
     Dosage: UNK
     Route: 065
     Dates: start: 20150119, end: 20150121
  4. ACETYLSALICYLIC ACID [Suspect]
     Active Substance: ASPIRIN
     Dosage: UNK
     Route: 065
     Dates: start: 20150130
  5. ACETYLSALICYLIC ACID [Suspect]
     Active Substance: ASPIRIN
     Indication: PYREXIA
     Dosage: UNK
     Route: 048
     Dates: start: 20150119, end: 20150121

REACTIONS (2)
  - Stevens-Johnson syndrome [Recovering/Resolving]
  - Product use issue [Unknown]

NARRATIVE: CASE EVENT DATE: 20150201
